FAERS Safety Report 9879840 (Version 1)
Quarter: 2014Q1

REPORT INFORMATION
  Report Type: Spontaneous
  Country: IT (occurrence: IT)
  Receive Date: 20140206
  Receipt Date: 20140206
  Transmission Date: 20141002
  Serious: Yes (Hospitalization)
  Sender: FDA-Public Use
  Company Number: IT-MYLANLABS-2014S1002065

PATIENT
  Age: 87 Year
  Sex: Male
  Weight: 0 kg

DRUGS (2)
  1. TICLOPIDINE HYDROCHLORIDE [Suspect]
     Indication: ATRIAL FIBRILLATION
     Dates: start: 20120101, end: 20140109
  2. OLPREZIDE [Concomitant]
     Indication: HYPERTENSION
     Dosage: 1 DF

REACTIONS (2)
  - Cerebral haematoma [Recovering/Resolving]
  - Head injury [Recovered/Resolved]
